FAERS Safety Report 8260854-8 (Version None)
Quarter: 2012Q2

REPORT INFORMATION
  Report Type: 
  Country: None (occurrence: None)
  Receive Date: 20120402
  Receipt Date: 20120327
  Transmission Date: 20120825
  Serious: Yes (Hospitalization)
  Sender: FDA-Public Use
  Company Number: 2011SP050841

PATIENT
  Age: 35 Year
  Sex: Female
  Weight: 81.1939 kg

DRUGS (2)
  1. WARFARIN SODIUM [Suspect]
  2. NUVARING [Suspect]
     Indication: CONTRACEPTION
     Dates: start: 20090601, end: 20091112

REACTIONS (16)
  - HAEMATEMESIS [None]
  - ACNE [None]
  - INFLUENZA [None]
  - FEELING ABNORMAL [None]
  - PULMONARY EMBOLISM [None]
  - HAEMATOCHEZIA [None]
  - LUNG INFILTRATION [None]
  - HAEMATOCRIT DECREASED [None]
  - BACK PAIN [None]
  - DEEP VEIN THROMBOSIS [None]
  - COAGULOPATHY [None]
  - URTICARIA [None]
  - PNEUMONIA BACTERIAL [None]
  - HAEMOGLOBIN DECREASED [None]
  - HYPONATRAEMIA [None]
  - HYPERGLYCAEMIA [None]
